FAERS Safety Report 5508253-3 (Version None)
Quarter: 2007Q4

REPORT INFORMATION
  Report Type: 
  Country: None (occurrence: None)
  Receive Date: 20071106
  Receipt Date: 20070510
  Transmission Date: 20080405
  Serious: No
  Sender: FDA-Public Use
  Company Number: A0651078A

PATIENT
  Age: 15 Year
  Sex: Male
  Weight: 68.2 kg

DRUGS (2)
  1. AMOXICILLIN [Suspect]
     Indication: DRUG USE FOR UNKNOWN INDICATION
     Dosage: 1TSP THREE TIMES PER DAY
     Route: 048
     Dates: start: 20070508
  2. PREVACID [Concomitant]

REACTIONS (6)
  - ABNORMAL BEHAVIOUR [None]
  - ADVERSE EVENT [None]
  - ANXIETY DISORDER [None]
  - PHARMACEUTICAL PRODUCT COMPLAINT [None]
  - RESTLESSNESS [None]
  - STARING [None]
